FAERS Safety Report 4330826-4 (Version None)
Quarter: 2004Q1

REPORT INFORMATION
  Report Type: 
  Country: None (occurrence: None)
  Receive Date: 20040331
  Receipt Date: 20040317
  Transmission Date: 20041129
  Serious: Yes (Hospitalization)
  Sender: FDA-Public Use
  Company Number: USA040362331

PATIENT
  Age: 6 Year
  Sex: Male
  Weight: 22 kg

DRUGS (4)
  1. ZYPREXA [Suspect]
     Indication: ANGER
     Dosage: 2.5 MG/ 2 DAY
  2. STRATTERA [Suspect]
     Indication: ATTENTION DEFICIT/HYPERACTIVITY DISORDER
     Dosage: 25 MG DAY
  3. RITALIN LA [Concomitant]
  4. FOCALIN (FOCALIN) [Concomitant]

REACTIONS (2)
  - AGGRESSION [None]
  - WEIGHT INCREASED [None]
